FAERS Safety Report 6704549-8 (Version None)
Quarter: 2010Q2

REPORT INFORMATION
  Report Type: 
  Country: None (occurrence: None)
  Receive Date: 20100430
  Receipt Date: 20100423
  Transmission Date: 20101027
  Serious: Yes (Other)
  Sender: FDA-Public Use
  Company Number: PHHO2010US06292

PATIENT
  Sex: Male
  Weight: 96 kg

DRUGS (3)
  1. ZOLEDRONIC ACID [Suspect]
     Indication: PROSTATE CANCER METASTATIC
     Dosage: 3.5 MG
     Route: 042
     Dates: start: 20090430
  2. MITOXANTRONE [Concomitant]
     Indication: PROSTATE CANCER METASTATIC
     Dosage: UNK
     Route: 042
     Dates: start: 20090205, end: 20090723
  3. PREDNISONE [Concomitant]
     Indication: PROSTATE CANCER METASTATIC
     Dosage: UNK
     Route: 048
     Dates: start: 20090205

REACTIONS (1)
  - OSTEONECROSIS [None]
